FAERS Safety Report 7989346-8 (Version None)
Quarter: 2011Q4

REPORT INFORMATION
  Report Type: 
  Country: None (occurrence: None)
  Receive Date: 20111216
  Receipt Date: 20111216
  Transmission Date: 20120403
  Serious: No
  Sender: FDA-Public Use
  Company Number: None

PATIENT
  Age: 64 Year
  Sex: Female
  Weight: 61.2356 kg

DRUGS (3)
  1. IPRATROPIUM BROMIDE [Suspect]
     Indication: ASTHMA
     Dosage: 2 SPRAYS IN EACH NOSTRIL TWICE A DAY
     Route: 045
  2. IPRATROPIUM BROMIDE [Suspect]
     Indication: BRONCHITIS
     Dosage: 2 SPRAYS IN EACH NOSTRIL TWICE A DAY
     Route: 045
  3. IPRATROPIUM BROMIDE [Suspect]
     Indication: UPPER-AIRWAY COUGH SYNDROME
     Dosage: 2 SPRAYS IN EACH NOSTRIL TWICE A DAY
     Route: 045

REACTIONS (3)
  - MALAISE [None]
  - PRODUCT ODOUR ABNORMAL [None]
  - COUGH [None]
